FAERS Safety Report 5573335-7 (Version None)
Quarter: 2007Q4

REPORT INFORMATION
  Report Type: 
  Country: None (occurrence: None)
  Receive Date: 20071226
  Receipt Date: 20071219
  Transmission Date: 20080405
  Serious: Yes (Hospitalization)
  Sender: FDA-Public Use
  Company Number: PHRM2007FR02853

PATIENT
  Age: 50 Year
  Sex: Female

DRUGS (4)
  1. COMTAN [Suspect]
     Indication: PARKINSON'S DISEASE
     Dosage: 200 MG, TID
     Route: 048
  2. COMTAN [Suspect]
     Dosage: 2 G, ONCE/SINGLE
     Route: 048
     Dates: start: 20071219, end: 20071219
  3. SINEMET [Suspect]
     Indication: PARKINSON'S DISEASE
     Dosage: 1 DF, TID
     Route: 048
  4. SINEMET [Suspect]
     Dosage: 10 DF, ONCE/SINGLE
     Route: 048
     Dates: start: 20071219, end: 20071219

REACTIONS (6)
  - HYPOTONIA [None]
  - INTENTIONAL OVERDOSE [None]
  - MYDRIASIS [None]
  - SKIN DISCOLOURATION [None]
  - SUICIDE ATTEMPT [None]
  - URTICARIA [None]
